FAERS Safety Report 15809135 (Version 2)
Quarter: 2019Q1

REPORT INFORMATION
  Report Type: Report from Study
  Country: US (occurrence: US)
  Receive Date: 20190110
  Receipt Date: 20190220
  Transmission Date: 20190417
  Serious: Yes (Death, Life-Threatening, Hospitalization, Other)
  Sender: FDA-Public Use
  Company Number: US-ACTELION-A-NJ2018-167819

PATIENT
  Age: 74 Year
  Sex: Male
  Weight: 96.15 kg

DRUGS (12)
  1. FLUOXETINE [Concomitant]
     Active Substance: FLUOXETINE HYDROCHLORIDE
     Dosage: 20 MG, UNK
     Route: 048
  2. ADCIRCA [Suspect]
     Active Substance: TADALAFIL
     Indication: PULMONARY HYPERTENSION
     Dosage: 20 MG, QD
     Route: 048
  3. CALCITRIOL. [Concomitant]
     Active Substance: CALCITRIOL
     Dosage: 0.25 UNK, UNK
     Route: 048
  4. FUROSEMIDE. [Concomitant]
     Active Substance: FUROSEMIDE
     Dosage: 40 MG, UNK
     Route: 048
  5. HYDRALAZINE [Concomitant]
     Active Substance: HYDRALAZINE HYDROCHLORIDE
     Dosage: 25 MG, BID
     Route: 048
  6. CIANOCOBALAMINA [Concomitant]
     Dosage: 1000 MCG, QD
     Route: 048
  7. FERROUS SULFATE. [Concomitant]
     Active Substance: FERROUS SULFATE
     Dosage: 325 MG, BID
     Route: 048
  8. TYVASO [Suspect]
     Active Substance: TREPROSTINIL
     Indication: PULMONARY HYPERTENSION
     Dosage: 6 MG/ML, (9 PUFFS) QID
     Route: 055
     Dates: end: 20181218
  9. FOLIC ACID. [Concomitant]
     Active Substance: FOLIC ACID
     Dosage: 0.04 MG, UNK
     Route: 048
  10. ACETAMINOPHEN W/HYDROCODONE [Concomitant]
     Active Substance: ACETAMINOPHEN\HYDROCODONE
     Dosage: 10 MG, PRN Q4H
     Route: 048
  11. TRACLEER [Suspect]
     Active Substance: BOSENTAN
     Indication: PULMONARY ARTERIAL HYPERTENSION
     Dosage: 125 MG, BID
     Route: 048
     Dates: end: 20181218
  12. ADCIRCA [Suspect]
     Active Substance: TADALAFIL
     Dosage: 40 MG, BID
     Route: 048
     Dates: end: 20181218

REACTIONS (16)
  - Pneumonia [Recovering/Resolving]
  - Hospice care [Unknown]
  - Transfusion reaction [Unknown]
  - Pulmonary hypertension [Unknown]
  - Myocardial ischaemia [Recovering/Resolving]
  - Diarrhoea [Unknown]
  - Fluid overload [Recovering/Resolving]
  - Encephalopathy [Recovering/Resolving]
  - Chronic kidney disease [Fatal]
  - Rales [Recovering/Resolving]
  - Dyspnoea [Recovering/Resolving]
  - Deafness bilateral [Unknown]
  - Pancreatic mass [Unknown]
  - Troponin increased [Recovering/Resolving]
  - Acute respiratory failure [Recovering/Resolving]
  - Oxygen therapy [Recovering/Resolving]

NARRATIVE: CASE EVENT DATE: 20180106
